FAERS Safety Report 8487172-7 (Version None)
Quarter: 2012Q3

REPORT INFORMATION
  Report Type: 
  Country: None (occurrence: None)
  Receive Date: 20120704
  Receipt Date: 20120625
  Transmission Date: 20120928
  Serious: Yes (Hospitalization)
  Sender: FDA-Public Use
  Company Number: US-ROCHE-1080733

PATIENT
  Sex: Male

DRUGS (2)
  1. AVASTIN [Suspect]
     Indication: CHORIORETINAL ATROPHY
     Route: 050
  2. LUCENTIS [Suspect]
     Indication: CHORIORETINAL ATROPHY
     Route: 050

REACTIONS (1)
  - CARDIAC OPERATION [None]
